FAERS Safety Report 24636123 (Version 1)
Quarter: 2024Q4

REPORT INFORMATION
  Report Type: Spontaneous
  Country: US (occurrence: US)
  Receive Date: 20241119
  Receipt Date: 20241119
  Transmission Date: 20250115
  Serious: Yes (Other)
  Sender: RANBAXY
  Company Number: US-SUN PHARMACEUTICAL INDUSTRIES LTD-2024R1-479056

PATIENT
  Age: 65 Year
  Sex: Female

DRUGS (1)
  1. GEMCITABINE [Suspect]
     Active Substance: GEMCITABINE
     Indication: Invasive ductal breast carcinoma
     Dosage: 1250 MILLIGRAM/SQ. METER, WEEKLY, FOR 3 WEEKS/MONTH
     Route: 065

REACTIONS (1)
  - Thrombotic microangiopathy [Unknown]
